FAERS Safety Report 4597792-8 (Version None)
Quarter: 2005Q1

REPORT INFORMATION
  Report Type: 
  Country: None (occurrence: None)
  Receive Date: 20050301
  Receipt Date: 20050216
  Transmission Date: 20050727
  Serious: Yes (Death)
  Sender: FDA-Public Use
  Company Number: MK200502-0175-1

PATIENT
  Age: 5 Day
  Sex: Male

DRUGS (12)
  1. ANAFRANIL CAP [Suspect]
     Dosage: IN UTERO
  2. VOLTAREN [Suspect]
     Dosage: IN UTERO
  3. AMOXCILLIN W/CLAVULANIC ACID [Concomitant]
  4. TRAMADOL HCL [Concomitant]
  5. PARACETAMOL [Concomitant]
  6. NITROFURANTOIN [Concomitant]
  7. LEVOTHYROXINE [Concomitant]
  8. FENTANYL [Concomitant]
  9. FLUVOXAMINE MALEATE [Concomitant]
  10. HYDROXYZINE [Concomitant]
  11. LEVOMEPROMAZINE [Concomitant]
  12. LACTITOL (ALL IN UTERO) [Concomitant]

REACTIONS (12)
  - CONGENITAL ACROCHORDON [None]
  - CONGENITAL ANOMALY [None]
  - CONGENITAL HYDROCEPHALUS [None]
  - DEAFNESS CONGENITAL [None]
  - DRUG EXPOSURE DURING PREGNANCY [None]
  - EAR MALFORMATION [None]
  - FACIAL DYSMORPHISM [None]
  - MICROGNATHIA [None]
  - PREMATURE BABY [None]
  - RETROGNATHIA [None]
  - SKELETON DYSPLASIA [None]
  - SLEEP APNOEA SYNDROME [None]
